FAERS Safety Report 9510714 (Version 3)
Quarter: 2015Q4

REPORT INFORMATION
  Report Type: Spontaneous
  Country: US (occurrence: US)
  Receive Date: 20130909
  Receipt Date: 20151023
  Transmission Date: 20160305
  Serious: Yes (Death)
  Sender: FDA-Public Use
  Company Number: US-ROCHE-1272286

PATIENT
  Age: 62 Year
  Sex: Male

DRUGS (3)
  1. XELODA [Suspect]
     Active Substance: CAPECITABINE
     Indication: BILIARY CANCER METASTATIC
     Route: 065
     Dates: start: 201210, end: 20121017
  2. XELODA [Suspect]
     Active Substance: CAPECITABINE
     Indication: HYPOXIA
  3. XELODA [Suspect]
     Active Substance: CAPECITABINE
     Indication: DYSPNOEA

REACTIONS (1)
  - Cholangiocarcinoma [Fatal]

NARRATIVE: CASE EVENT DATE: 20121129
